FAERS Safety Report 5220781-7 (Version None)
Quarter: 2007Q1

REPORT INFORMATION
  Report Type: 
  Country: None (occurrence: None)
  Receive Date: 20070126
  Receipt Date: 20070119
  Transmission Date: 20070707
  Serious: Yes (Other)
  Sender: FDA-Public Use
  Company Number: AU-JNJFOC-20070105217

PATIENT
  Sex: Female

DRUGS (11)
  1. REMICADE [Suspect]
     Indication: DRUG USE FOR UNKNOWN INDICATION
     Dosage: THREE INFUSIONS
     Route: 042
  2. MORPHINE SUL INJ [Concomitant]
     Indication: PAIN
  3. HYDROCORTISONE [Concomitant]
  4. PROMETHAZINE HCL [Concomitant]
  5. QUETIAPINE FUMARATE [Concomitant]
  6. CITALOPRAM HYDROBROMIDE [Concomitant]
  7. LEVOTHYROXINE SODIUM [Concomitant]
  8. AZATHIOPRINE [Concomitant]
  9. METHYLPREDNISOLONE 16MG TAB [Concomitant]
  10. PARACETAMOL [Concomitant]
  11. THIAMINE [Concomitant]

REACTIONS (6)
  - CHEST DISCOMFORT [None]
  - HEARING IMPAIRED [None]
  - INFUSION RELATED REACTION [None]
  - MALAISE [None]
  - THROAT TIGHTNESS [None]
  - VISUAL DISTURBANCE [None]
